FAERS Safety Report 20500064 (Version 3)
Quarter: 2022Q2

REPORT INFORMATION
  Report Type: Other
  Country: GB (occurrence: GB)
  Receive Date: 20220222
  Receipt Date: 20220629
  Transmission Date: 20220721
  Serious: Yes (Other)
  Sender: FDA-Public Use
  Company Number: None

PATIENT
  Sex: Male

DRUGS (56)
  1. OLANZAPINE [Suspect]
     Active Substance: OLANZAPINE
     Indication: Product used for unknown indication
     Dosage: 5 MILLIGRAM QD
     Route: 048
  2. OLANZAPINE [Suspect]
     Active Substance: OLANZAPINE
     Dosage: 10 MG, QD (PER DAY)
     Route: 048
  3. OLANZAPINE [Suspect]
     Active Substance: OLANZAPINE
     Dosage: 10 MILLIGRAM, PER DAY
     Route: 065
  4. OLANZAPINE [Suspect]
     Active Substance: OLANZAPINE
     Dosage: 10 MILLIGRAM, PRN (QD)
     Route: 065
  5. OLANZAPINE [Suspect]
     Active Substance: OLANZAPINE
     Dosage: 5 MILLIGRAM, ONCE A DAY
     Route: 065
  6. PROMETHAZINE HYDROCHLORIDE [Suspect]
     Active Substance: PROMETHAZINE HYDROCHLORIDE
     Indication: Product used for unknown indication
     Dosage: 25 MILLIGRAM, QD/ PER DAY (AT NIGHT)
     Route: 065
  7. PROMETHAZINE HYDROCHLORIDE [Suspect]
     Active Substance: PROMETHAZINE HYDROCHLORIDE
     Dosage: 25 MILLIGRAM, PER DAY (HS)
     Route: 048
  8. PROMETHAZINE HYDROCHLORIDE [Suspect]
     Active Substance: PROMETHAZINE HYDROCHLORIDE
     Dosage: 25 MILLIGRAM,UNK NOCTE
     Route: 065
  9. PROMETHAZINE HYDROCHLORIDE [Suspect]
     Active Substance: PROMETHAZINE HYDROCHLORIDE
     Dosage: 25 MILLIGRAM, QD (ONCE A DAY, AT NIGHT )
     Route: 048
  10. AZATHIOPRINE [Suspect]
     Active Substance: AZATHIOPRINE
     Indication: Colitis
     Dosage: 75 MILLIGRAM, QD (ONCE A DAY) DAILY WITH OR JUST AFTER FOOD/ MORNING, LUNCH AND TEA TIME (WITH OR JU
     Route: 048
  11. AZATHIOPRINE [Suspect]
     Active Substance: AZATHIOPRINE
     Dosage: 25 MILLIGRAM, QD (MORNING, LUNCH AND TEA TIME (WITH OR JUST AFTER FOOD/MEAL))
     Route: 048
  12. AZATHIOPRINE [Suspect]
     Active Substance: AZATHIOPRINE
     Dosage: 75 MILLIGRAM, DAILY,WITH OR JUST AFTER FOOD/ MORNING, LUNCH AND TEA TIME (WITH OR JUST AFTER FOOD/ME
     Route: 048
  13. AZATHIOPRINE [Suspect]
     Active Substance: AZATHIOPRINE
     Dosage: 75 MILLIGRAM, PER DAY
     Route: 065
  14. AZATHIOPRINE [Suspect]
     Active Substance: AZATHIOPRINE
     Dosage: 25 MILLIGRAM, QD (MORNING, LUNCH AND TEA TIME (WITH OR JUST AFTER FOOD/MEAL))
     Route: 065
  15. AZATHIOPRINE [Suspect]
     Active Substance: AZATHIOPRINE
     Dosage: 25 MILLIGRAM, EVERY 8 HRS (Q8H (MORNING, LUNCH AND TEA TIME (WITH OR JUST AFTER FOOD/MEAL))
     Route: 048
  16. AZATHIOPRINE [Suspect]
     Active Substance: AZATHIOPRINE
     Dosage: 75 MILLIGRAM, EVERY 8 HOURS (MORNING, LUNCH AND TEA TIME (WITH OR JUST AFTER FOOD/MEAL)
     Route: 048
  17. AZATHIOPRINE [Suspect]
     Active Substance: AZATHIOPRINE
     Dosage: 75 MILLIGRAM, PER DAY
     Route: 048
  18. AZATHIOPRINE [Suspect]
     Active Substance: AZATHIOPRINE
     Dosage: 25 MILLIGRAM, DAILY (MORNING, LUNCH AND TEA TIME)
     Route: 065
  19. AZATHIOPRINE [Suspect]
     Active Substance: AZATHIOPRINE
     Dosage: 75 MILLIGRAM, ONCE A DAY,(MORNING, LUNCH AND TEA TIME)
     Route: 048
  20. FERROUS GLUCONATE [Suspect]
     Active Substance: FERROUS GLUCONATE
     Indication: Anaemia
     Dosage: 210 MILLIGRAM, BID
     Route: 048
  21. FERROUS FUMARATE [Suspect]
     Active Substance: FERROUS FUMARATE
     Indication: Anaemia
     Dosage: 420 MILLIGRAM, DAILY (MORNING AND NIGHT)
     Route: 048
  22. FERROUS FUMARATE [Suspect]
     Active Substance: FERROUS FUMARATE
     Dosage: 210 MILLIGRAM, QD (ONCE A DAY), MORNING AND NIGHT
     Route: 065
  23. FERROUS FUMARATE [Suspect]
     Active Substance: FERROUS FUMARATE
     Dosage: 840 MILLIGRAM,QD (ONCE A DAY) (MORNING AND NIGHT)
     Route: 048
  24. FERROUS FUMARATE [Suspect]
     Active Substance: FERROUS FUMARATE
     Dosage: 420 MILLIGRAM, PER DAY
     Route: 048
  25. FERROUS FUMARATE [Suspect]
     Active Substance: FERROUS FUMARATE
     Dosage: 210 MILLIGRAM, EVERY 12 HRS, MORNING AND NIGHT
     Route: 048
  26. FERROUS FUMARATE [Suspect]
     Active Substance: FERROUS FUMARATE
     Dosage: 420 MILLIGRAM, PER DAY
     Route: 065
  27. FERROUS FUMARATE [Suspect]
     Active Substance: FERROUS FUMARATE
     Dosage: 840 MILLIGRAM,QD (ONCE A DAY) (MORNING AND NIGHT)
     Route: 065
  28. FERROUS FUMARATE [Suspect]
     Active Substance: FERROUS FUMARATE
     Dosage: 210 MILLIGRAM, UNK
     Route: 048
  29. FERROUS FUMARATE [Suspect]
     Active Substance: FERROUS FUMARATE
     Dosage: 420 MILLIGRAM, BID (MORNING AND NIGHT)
     Route: 048
  30. FERROUS FUMARATE [Suspect]
     Active Substance: FERROUS FUMARATE
     Dosage: 210 MILLIGRAM, BID (MORNING AND NIGHT)
     Route: 048
  31. ESCITALOPRAM [Suspect]
     Active Substance: ESCITALOPRAM OXALATE
     Indication: Product used for unknown indication
     Dosage: 10 MILLIGRAM, EVERY MORNING (ONCE A DAY) (QD)
     Route: 048
  32. ESCITALOPRAM [Suspect]
     Active Substance: ESCITALOPRAM OXALATE
     Dosage: 10 MILLIGRAM, EVERY MORNING (PER DAY)
     Route: 065
  33. DIHYDROCODEINE [Suspect]
     Active Substance: DIHYDROCODEINE
     Indication: Pain
     Dosage: 2 DOSAGE FORM, AS NECESSARY (TWO TO BE TAKEN FOUR TIMES A DAY IF REQUIRED) (EVERY 6 HRS)
     Route: 048
  34. DIHYDROCODEINE [Suspect]
     Active Substance: DIHYDROCODEINE
     Dosage: 60 MG, PRN (WITH OR JUST AFTER FOOD/MEAL) AS NECESSARY (EVERY 6 HRS), 240 MG PER DAY
     Route: 048
  35. DIHYDROCODEINE [Suspect]
     Active Substance: DIHYDROCODEINE
     Dosage: 60 MILLIGRAM, QD
     Route: 048
  36. DIHYDROCODEINE [Suspect]
     Active Substance: DIHYDROCODEINE
     Dosage: 240 MILLIGRAM, PER DAY (4 TIMES A DAY, WITH OR JUST AFTER FOOD/MEAL)/ EVERY 6 HRS
     Route: 048
  37. DIHYDROCODEINE [Suspect]
     Active Substance: DIHYDROCODEINE
     Dosage: 60 MG, PRN FOUR TIMES A DAY. TAKE WITH OR JUST AFTER FOOD.
     Route: 065
  38. DIHYDROCODEINE [Suspect]
     Active Substance: DIHYDROCODEINE
     Dosage: 240 MILLIGRAM, QID (FOUR TIMES DAILY)
     Route: 048
  39. DIHYDROCODEINE [Suspect]
     Active Substance: DIHYDROCODEINE
     Dosage: 2 DOSAGE FORM, PRN (TWO TO BE TAKEN FOUR TIMES A DAY IF REQUIRED)
     Route: 065
  40. DIHYDROCODEINE [Suspect]
     Active Substance: DIHYDROCODEINE
     Dosage: 60 MILLIGRAM, QID (FOUR TIMES DAILY WITH OR JUST AFTER MEAL)
     Route: 065
  41. DIHYDROCODEINE [Suspect]
     Active Substance: DIHYDROCODEINE
     Dosage: 60 MILLIGRAM,PRN, AS NECESSARY
     Route: 065
  42. DIHYDROCODEINE [Suspect]
     Active Substance: DIHYDROCODEINE
     Dosage: 8 DOSAGE FORM, QD
     Route: 048
  43. DIHYDROCODEINE [Suspect]
     Active Substance: DIHYDROCODEINE
     Dosage: 60 MILLIGRAM, PRN
     Route: 065
  44. DIHYDROCODEINE [Suspect]
     Active Substance: DIHYDROCODEINE
     Dosage: 240 MILLIGRAM, EVERY 6 HRS (Q6H, FOUR TIMES DAILY. WITH OR JUST AFTER FOOD/MEAL)
     Route: 048
  45. DIHYDROCODEINE [Suspect]
     Active Substance: DIHYDROCODEINE
     Dosage: 60 MILLIGRAM, EVERY 6 HRS (Q6H TWO TO BE TAKEN FOUR TIMES A DAY IF REQUIRED)
     Route: 048
  46. DIHYDROCODEINE [Suspect]
     Active Substance: DIHYDROCODEINE
     Dosage: 2 DOSAGE FORM, EVERY 6 HRS (Q6H, AS NECESSARY,TWO TO BE TAKEN FOUR TIMES A DAY IF REQUIRED. RECEIVED
     Route: 048
  47. DIHYDROCODEINE [Suspect]
     Active Substance: DIHYDROCODEINE
     Dosage: 60 MILLIGRAM, PER DAY (ONCE A DAY)
     Route: 065
  48. DIHYDROCODEINE [Suspect]
     Active Substance: DIHYDROCODEINE
     Dosage: 60 MILLIGRAM, FOUR TIMES DAILY
     Route: 048
  49. DIHYDROCODEINE [Suspect]
     Active Substance: DIHYDROCODEINE
     Dosage: 8 DOSAGE FORM, PER DAY (TWO TO BE TAKEN FOUR TIMES A DAY IF REQUIRED, AS NECESSARY)
     Route: 048
  50. DIHYDROCODEINE [Suspect]
     Active Substance: DIHYDROCODEINE
     Dosage: 8 DOSAGE FORM, Q4H PER DAY (TWO TO BE TAKEN FOUR TIMES A DAY IF REQUIRED, AS NECESSARY)
     Route: 048
  51. MIRTAZAPINE [Suspect]
     Active Substance: MIRTAZAPINE
     Indication: Product used for unknown indication
     Dosage: 30 MILLIGRAM, AT BED TIME (ONCE A DAY, NIGHT)
     Route: 048
  52. MIRTAZAPINE [Suspect]
     Active Substance: MIRTAZAPINE
     Dosage: 30 MILLIGRAM, UNK, NOCTE
     Route: 048
  53. FOLIC ACID [Suspect]
     Active Substance: FOLIC ACID
     Indication: Folate deficiency
     Dosage: 5 MILLIGRAM, DAILY EVERY MORNING, QD (ONCE A DAY)
     Route: 048
  54. FOLIC ACID [Suspect]
     Active Substance: FOLIC ACID
     Dosage: 5 MILLIGRAM, PER DAY
     Route: 048
  55. FOLIC ACID [Suspect]
     Active Substance: FOLIC ACID
     Dosage: 5 MILLIGRAM, PER DAY
     Route: 065
  56. FOLIC ACID [Suspect]
     Active Substance: FOLIC ACID
     Dosage: 5 MILLIGRAM, EVERY MORNING, DAILY
     Route: 065

REACTIONS (4)
  - Autoscopy [Unknown]
  - Seizure [Unknown]
  - Overdose [Unknown]
  - Off label use [Unknown]
